FAERS Safety Report 13285880 (Version 1)
Quarter: 2017Q1

REPORT INFORMATION
  Report Type: Spontaneous
  Country: US (occurrence: US)
  Receive Date: 20170302
  Receipt Date: 20170302
  Transmission Date: 20170428
  Serious: No
  Sender: FDA-Public Use
  Company Number: None

PATIENT
  Age: 64 Year
  Sex: Female

DRUGS (1)
  1. REVLIMID [Suspect]
     Active Substance: LENALIDOMIDE
     Indication: PLASMA CELL MYELOMA
     Route: 048
     Dates: start: 20170213, end: 20170228

REACTIONS (6)
  - Pneumonia [None]
  - Upper respiratory tract infection [None]
  - Oropharyngeal pain [None]
  - Cough [None]
  - Rash [None]
  - Laryngitis [None]

NARRATIVE: CASE EVENT DATE: 20170220
